FAERS Safety Report 9570749 (Version 1)
Quarter: 2013Q3

REPORT INFORMATION
  Report Type: Spontaneous
  Country: US (occurrence: None)
  Receive Date: 20130926
  Receipt Date: 20130926
  Transmission Date: 20140515
  Serious: Yes (Disabling)
  Sender: FDA-Public Use
  Company Number: None

PATIENT
  Age: 67 Year
  Sex: Female

DRUGS (1)
  1. CIPRO [Suspect]
     Indication: URINARY TRACT INFECTION
     Dosage: TOOK AS PRESCRIBED
     Dates: start: 20081101, end: 20081101

REACTIONS (6)
  - Anaphylactic shock [None]
  - Tremor [None]
  - Dyspnoea [None]
  - Anxiety [None]
  - Flushing [None]
  - Nausea [None]
